FAERS Safety Report 4915137-8 (Version None)
Quarter: 2006Q1

REPORT INFORMATION
  Report Type: 
  Country: None (occurrence: None)
  Receive Date: 20060215
  Receipt Date: 20060215
  Transmission Date: 20060701
  Serious: Yes (Other)
  Sender: FDA-Public Use
  Company Number: None

PATIENT
  Age: 24 Year
  Sex: Female
  Weight: 56.6996 kg

DRUGS (2)
  1. CORICIDIN HBP COUGH + COLD (CHLORPHENIRAMINE MAL/ DEX TABLETS [Suspect]
     Indication: DRUG ABUSER
     Dosage: 16-32 TABS QD ORAL
     Route: 048
     Dates: start: 20020301, end: 20050901
  2. ASPIRIN [Concomitant]

REACTIONS (5)
  - DRUG DEPENDENCE [None]
  - HEADACHE [None]
  - HYPERTENSION [None]
  - INCORRECT DOSE ADMINISTERED [None]
  - INTENTIONAL DRUG MISUSE [None]
